FAERS Safety Report 8910421 (Version 2)
Quarter: 2012Q4

REPORT INFORMATION
  Report Type: 
  Country: FR (occurrence: FR)
  Receive Date: 20121114
  Receipt Date: 20121130
  Transmission Date: 20130627
  Serious: Yes (Disabling, Other)
  Sender: FDA-Public Use
  Company Number: FR-PFIZER INC-2012279785

PATIENT
  Age: 60 Year
  Sex: Male
  Weight: 65 kg

DRUGS (1)
  1. AZITHROMYCIN [Suspect]
     Indication: INFECTION
     Dosage: 2 film-coated 250 mg tablets, single intake
     Route: 048
     Dates: start: 20121106, end: 20121106

REACTIONS (7)
  - Meniere^s disease [Recovered/Resolved]
  - Vomiting [Recovered/Resolved]
  - Abdominal pain [Recovered/Resolved]
  - Nausea [Recovered/Resolved]
  - Tinnitus [Unknown]
  - Feeling abnormal [Not Recovered/Not Resolved]
  - Yellow skin [Not Recovered/Not Resolved]
